FAERS Safety Report 8882318 (Version 1)
Quarter: 2012Q4

REPORT INFORMATION
  Report Type: 
  Country: US (occurrence: US)
  Receive Date: 20121102
  Receipt Date: 20121102
  Transmission Date: 20130627
  Serious: No
  Sender: FDA-Public Use
  Company Number: US-009507513-1211USA000338

PATIENT
  Sex: Female

DRUGS (2)
  1. DULERA [Suspect]
     Indication: ASTHMA
     Dosage: UNK UNK, bid
     Dates: start: 201210, end: 201210
  2. ALBUTEROL [Concomitant]

REACTIONS (1)
  - Tongue disorder [Recovered/Resolved]
